FAERS Safety Report 24024202 (Version 1)
Quarter: 2024Q2

REPORT INFORMATION
  Report Type: Report from Study
  Country: US (occurrence: US)
  Receive Date: 20240627
  Receipt Date: 20240627
  Transmission Date: 20240715
  Serious: Yes (Other)
  Sender: FDA-Public Use
  Company Number: US-ABBVIE-5810295

PATIENT
  Age: 59 Year
  Sex: Female

DRUGS (1)
  1. RINVOQ [Suspect]
     Active Substance: UPADACITINIB
     Indication: Rheumatoid arthritis
     Route: 048
     Dates: start: 20230908

REACTIONS (12)
  - Vein rupture [Not Recovered/Not Resolved]
  - Endodontic procedure [Not Recovered/Not Resolved]
  - Blepharospasm [Recovered/Resolved]
  - Urticaria [Recovered/Resolved]
  - Night sweats [Unknown]
  - Facial spasm [Recovered/Resolved]
  - Periorbital swelling [Unknown]
  - Acne [Recovered/Resolved]
  - Peripheral swelling [Recovered/Resolved]
  - Neck pain [Not Recovered/Not Resolved]
  - Facial pain [Not Recovered/Not Resolved]
  - Chest pain [Not Recovered/Not Resolved]

NARRATIVE: CASE EVENT DATE: 20240618
